FAERS Safety Report 13305350 (Version 1)
Quarter: 2017Q1

REPORT INFORMATION
  Report Type: Spontaneous
  Country: US (occurrence: US)
  Receive Date: 20170308
  Receipt Date: 20170308
  Transmission Date: 20170428
  Serious: No
  Sender: FDA-Public Use
  Company Number: US-BAUSCH-BL-2016-012875

PATIENT
  Age: 75 Year
  Sex: Male
  Weight: 68.1 kg

DRUGS (2)
  1. UCERIS [Suspect]
     Active Substance: BUDESONIDE
     Indication: COLITIS ULCERATIVE
     Dosage: ONE 9 MG TABLET A DAY FOR 6 TO 7 WEEKS
     Route: 048
     Dates: start: 2014
  2. UCERIS [Suspect]
     Active Substance: BUDESONIDE
     Dosage: ONE 9 MG TABLET A DAY FOR 6 TO 7 WEEKS
     Route: 048
     Dates: start: 2015

REACTIONS (2)
  - Oedema [Recovered/Resolved]
  - Drug ineffective [Unknown]
